FAERS Safety Report 9575264 (Version 1)
Quarter: 2013Q4

REPORT INFORMATION
  Report Type: Spontaneous
  Country: DE (occurrence: DE)
  Receive Date: 20131001
  Receipt Date: 20131001
  Transmission Date: 20140711
  Serious: Yes (Other)
  Sender: FDA-Public Use
  Company Number: DE-GLAXOSMITHKLINE-D0081104A

PATIENT
  Age: 83 Year
  Sex: Female

DRUGS (3)
  1. ARIXTRA [Suspect]
     Dosage: 2.5MG PER DAY
     Route: 058
     Dates: start: 20130321, end: 20130329
  2. ASS [Suspect]
     Dosage: 100MG PER DAY
     Route: 065
     Dates: start: 20130322, end: 20130329
  3. MULTIPLE MEDICATION [Concomitant]
     Route: 065

REACTIONS (4)
  - Muscle haemorrhage [Recovered/Resolved]
  - Haemoglobin decreased [Unknown]
  - Local swelling [Unknown]
  - Induration [Unknown]
